FAERS Safety Report 16190114 (Version 11)
Quarter: 2021Q2

REPORT INFORMATION
  Report Type: Report from Study
  Country: GB (occurrence: GB)
  Receive Date: 20190412
  Receipt Date: 20210409
  Transmission Date: 20210716
  Serious: Yes (Hospitalization, Other)
  Sender: FDA-Public Use
  Company Number: PHHY2018GB112354

PATIENT
  Age: 66 Year
  Sex: Male

DRUGS (9)
  1. CANDESARTAN. [Concomitant]
     Active Substance: CANDESARTAN
     Indication: HYPERTENSION
     Dosage: 2 MG, QD
     Route: 065
     Dates: start: 20170923
  2. DOXAZOSIN [Concomitant]
     Active Substance: DOXAZOSIN MESYLATE
     Dosage: 12 MG
     Route: 065
  3. SANDOSTATIN LAR DEPOT [Suspect]
     Active Substance: OCTREOTIDE ACETATE
     Dosage: 30 MG, QMO (POWDER)
     Route: 030
  4. SANDOSTATIN LAR DEPOT [Suspect]
     Active Substance: OCTREOTIDE ACETATE
  5. SANDOSTATIN LAR DEPOT [Suspect]
     Active Substance: OCTREOTIDE ACETATE
     Indication: NEUROENDOCRINE TUMOUR
     Dosage: 30 MG, QMO (EVERY 4 WEEKS)
     Route: 030
     Dates: start: 2015
  6. DOXAZOSIN [Concomitant]
     Active Substance: DOXAZOSIN MESYLATE
     Dosage: 8 MG
     Route: 065
  7. INDAPAMIDE. [Concomitant]
     Active Substance: INDAPAMIDE
     Indication: PRODUCT USED FOR UNKNOWN INDICATION
     Dosage: UNK
     Route: 065
  8. DOXAZOSIN [Concomitant]
     Active Substance: DOXAZOSIN MESYLATE
     Indication: PRODUCT USED FOR UNKNOWN INDICATION
     Dosage: 2 MG
     Route: 065
  9. DOXAZOSIN [Concomitant]
     Active Substance: DOXAZOSIN MESYLATE
     Dosage: 4 MG
     Route: 065

REACTIONS (25)
  - Feeling cold [Unknown]
  - Mouth haemorrhage [Recovered/Resolved]
  - Chorioretinopathy [Unknown]
  - Joint swelling [Unknown]
  - Dyspnoea [Unknown]
  - Urinary tract infection [Unknown]
  - Hypoglycaemia [Unknown]
  - Vomiting [Unknown]
  - Pneumonia [Unknown]
  - Renal impairment [Unknown]
  - Urinary tract infection [Recovered/Resolved]
  - Arthralgia [Unknown]
  - Rash [Unknown]
  - Pyrexia [Unknown]
  - Groin abscess [Unknown]
  - Feeling abnormal [Unknown]
  - Haemorrhoids [Unknown]
  - Blood magnesium decreased [Unknown]
  - Needle issue [Unknown]
  - Malaise [Unknown]
  - Muscle spasms [Unknown]
  - Tendon pain [Unknown]
  - Deep vein thrombosis [Unknown]
  - Vascular rupture [Unknown]
  - SARS-CoV-2 test positive [Unknown]

NARRATIVE: CASE EVENT DATE: 20210114
